FAERS Safety Report 6458079-1 (Version None)
Quarter: 2009Q4

REPORT INFORMATION
  Report Type: 
  Country: None (occurrence: None)
  Receive Date: 20091125
  Receipt Date: 20091124
  Transmission Date: 20100525
  Serious: Yes (Death, Other)
  Sender: FDA-Public Use
  Company Number: BR-ABBOTT-09P-020-0610519-00

PATIENT
  Sex: Male

DRUGS (5)
  1. HUMIRA [Suspect]
     Indication: RHEUMATOID ARTHRITIS
     Route: 058
     Dates: start: 20090107
  2. ARADOIS [Concomitant]
     Indication: BLOOD PRESSURE
     Route: 048
  3. ARAVA [Concomitant]
     Indication: RHEUMATOID ARTHRITIS
     Route: 048
     Dates: end: 20090101
  4. TRAMADOL HCL [Concomitant]
     Indication: PAIN
     Dosage: 1 OR 2 TABLETS DAILY
     Route: 048
     Dates: end: 20090901
  5. DOXAZOSIN MESILATE [Concomitant]
     Indication: DIURETIC THERAPY
     Route: 048
     Dates: start: 20010101, end: 20090901

REACTIONS (7)
  - ARTHRITIS BACTERIAL [None]
  - BLOOD PRESSURE FLUCTUATION [None]
  - BLOOD URINE PRESENT [None]
  - ILL-DEFINED DISORDER [None]
  - OSTEOMYELITIS [None]
  - RHEUMATOID ARTHRITIS [None]
  - TRANSFUSION [None]
